FAERS Safety Report 8513874-X (Version None)
Quarter: 2012Q3

REPORT INFORMATION
  Report Type: 
  Country: None (occurrence: None)
  Receive Date: 20120717
  Receipt Date: 20120703
  Transmission Date: 20120928
  Serious: Yes (Hospitalization, Other)
  Sender: FDA-Public Use
  Company Number: JP-JNJFOC-20120700168

PATIENT
  Age: 39 Year
  Sex: Male

DRUGS (7)
  1. RISPERDAL [Suspect]
     Indication: SCHIZOPHRENIA
     Route: 048
  2. CHLORPROMAZINE HCL [Concomitant]
     Indication: SCHIZOPHRENIA
     Route: 048
     Dates: start: 20060101, end: 20120628
  3. PALOLACTIN [Concomitant]
     Indication: TREMOR
     Route: 048
     Dates: start: 20060101
  4. TRIHEXYPHENIDYL HCL [Concomitant]
     Indication: TREMOR
     Route: 048
     Dates: start: 20060101
  5. RISPERDAL [Suspect]
     Route: 048
     Dates: start: 20060101, end: 20120201
  6. RISPERDAL [Suspect]
     Route: 048
     Dates: start: 20120201, end: 20120628
  7. CLONAZEPAM [Concomitant]
     Indication: ANXIETY
     Route: 048
     Dates: start: 20060101

REACTIONS (4)
  - PULMONARY EMBOLISM [None]
  - DEEP VEIN THROMBOSIS [None]
  - DELUSION [None]
  - HALLUCINATION [None]
